FAERS Safety Report 8920261 (Version 2)
Quarter: 2013Q2

REPORT INFORMATION
  Report Type: Report from Study
  Country: PL (occurrence: PL)
  Receive Date: 20121122
  Receipt Date: 20130517
  Transmission Date: 20140414
  Serious: Yes (Hospitalization, Other)
  Sender: FDA-Public Use
  Company Number: PL-ROCHE-1148655

PATIENT
  Age: 46 Year
  Sex: Male
  Weight: 64.5 kg

DRUGS (22)
  1. PANZOL [Concomitant]
     Indication: PEPTIC ULCER
     Route: 065
     Dates: start: 200703, end: 20130514
  2. EMANERA [Concomitant]
     Indication: PEPTIC ULCER
     Route: 065
     Dates: start: 20130514
  3. METHOXY POLYETHYLENE GLYCOL-EPOETIN BETA [Suspect]
     Indication: ANAEMIA
     Route: 042
     Dates: start: 20120831
  4. MYCOPHENOLATE MOFETIL [Suspect]
     Indication: IMMUNOSUPPRESSANT DRUG THERAPY
     Route: 048
     Dates: start: 200703
  5. IPOREL [Concomitant]
     Indication: HYPERTENSION
     Route: 048
     Dates: start: 200703
  6. DOPEGYT [Concomitant]
     Indication: HYPERTENSION
     Route: 048
     Dates: start: 200703
  7. ADIPINE [Concomitant]
     Indication: HYPERTENSION
     Route: 048
     Dates: start: 200703
  8. CALPEROS [Concomitant]
     Route: 048
     Dates: start: 200703
  9. POLOCARD [Concomitant]
     Route: 048
     Dates: start: 200703
  10. POLOCARD [Concomitant]
     Route: 048
     Dates: start: 200703, end: 20130509
  11. KAMIREN [Concomitant]
     Indication: HYPERTENSION
     Route: 048
     Dates: start: 200703
  12. PANZOL [Concomitant]
     Indication: GASTRIC ULCER
     Route: 048
     Dates: start: 201203
  13. ENCORTON [Concomitant]
     Indication: IMMUNOSUPPRESSANT DRUG THERAPY
     Route: 048
     Dates: start: 2010
  14. ENCORTON [Concomitant]
     Route: 048
     Dates: start: 20101029, end: 20121105
  15. ENCORTON [Concomitant]
     Route: 048
     Dates: start: 20121105, end: 20121112
  16. ENCORTON [Concomitant]
     Route: 048
     Dates: start: 20121112
  17. ENCORTON [Concomitant]
     Route: 048
     Dates: start: 20121020
  18. CLEXANE [Concomitant]
     Indication: THROMBOSIS PROPHYLAXIS
     Route: 048
     Dates: start: 20130131, end: 20130509
  19. KAMIREN [Concomitant]
     Indication: HYPERTENSION
     Route: 048
     Dates: start: 200703
  20. METOCARD ZK [Concomitant]
     Indication: HYPERTENSION
     Route: 048
     Dates: start: 200703
  21. DOPEGYT [Concomitant]
     Indication: HYPERTENSION
     Route: 048
     Dates: start: 200703
  22. CALPEROS [Concomitant]
     Route: 065
     Dates: start: 200703

REACTIONS (3)
  - Pneumonia [Unknown]
  - Granulomatosis with polyangiitis [Recovered/Resolved]
  - Gastrointestinal haemorrhage [Recovered/Resolved]
